FAERS Safety Report 9169062 (Version 1)
Quarter: 2013Q1

REPORT INFORMATION
  Report Type: Spontaneous
  Country: US (occurrence: None)
  Receive Date: 20130308
  Receipt Date: 20130308
  Transmission Date: 20140127
  Serious: Yes (Hospitalization)
  Sender: FDA-Public Use
  Company Number: QSC-2013-0054

PATIENT
  Age: 10 Year
  Sex: Male
  Weight: 41.3 kg

DRUGS (7)
  1. H.P. ACTHAR GEL (ADRENOCORTICOTROPIC HORMONE) GEL FOR INJECTION, 80U/ML [Suspect]
     Indication: FOCAL SEGMENTAL GLOMERULOSCLEROSIS
     Dosage: 80 UNITS
     Dates: start: 201210, end: 201301
  2. LISINOPRIL (LISINOPRIL DIHYDRATE) (UNKNOWN [Concomitant]
  3. LOSARTAN (LOSARTAN POTASSIUM) [Concomitant]
  4. SYMBICORT [Concomitant]
  5. CETIRIZINE (CETIRIZINE) [Concomitant]
  6. ERGOCALCIFEROL (ERGOCALCIFEROL) [Concomitant]
  7. LASIX (FUROSEMIDE) [Concomitant]

REACTIONS (3)
  - Subclavian vein thrombosis [None]
  - Jugular vein thrombosis [None]
  - Coagulation time prolonged [None]
